FAERS Safety Report 8242529-4 (Version None)
Quarter: 2012Q1

REPORT INFORMATION
  Report Type: 
  Country: None (occurrence: None)
  Receive Date: 20120329
  Receipt Date: 20120319
  Transmission Date: 20120608
  Serious: Yes (Other)
  Sender: FDA-Public Use
  Company Number: PHEH2012US006173

PATIENT
  Sex: Female

DRUGS (9)
  1. ZOLPIDEM [Concomitant]
     Dosage: 10 MG, AS NEEDED
  2. BENADRYL [Concomitant]
     Dosage: 50 MG, BID
  3. EXJADE [Suspect]
     Indication: IRON OVERLOAD
     Dosage: 500 MG, BID
  4. FOLIC ACID [Concomitant]
     Dosage: 1 MG, QD
  5. FLEXERIL [Concomitant]
     Dosage: 10 MG, AS NEEDED
  6. TRAMADOL HCL [Concomitant]
     Dosage: 50 MG, AS NEEDED
  7. VALIUM [Concomitant]
     Dosage: 10 MG, BID
  8. HYDROCODONE [Concomitant]
     Dosage: 10 MG/325 MG AS NEEDED
  9. NEXIUM [Concomitant]
     Dosage: 40 MG, QD

REACTIONS (3)
  - NERVOUSNESS [None]
  - ABNORMAL DREAMS [None]
  - CONVULSION [None]
